FAERS Safety Report 4299899-1 (Version None)
Quarter: 2004Q1

REPORT INFORMATION
  Report Type: 
  Country: None (occurrence: None)
  Receive Date: 20040219
  Receipt Date: 20040206
  Transmission Date: 20041129
  Serious: Yes (Hospitalization)
  Sender: FDA-Public Use
  Company Number: 2004007860

PATIENT
  Age: 80 Year
  Sex: Female

DRUGS (2)
  1. ACTFED-C EXPECTORANT [Suspect]
     Indication: NASOPHARYNGITIS
     Dosage: 1 TAB ONCE, ORAL
     Route: 048
     Dates: start: 20031212, end: 20031213
  2. URSODEOXYCHOLIC ACID (URSODEOXYCHLOCIC ACID) [Concomitant]

REACTIONS (12)
  - BLOOD CREATINE INCREASED [None]
  - BLOOD GLUCOSE INCREASED [None]
  - BLOOD UREA INCREASED [None]
  - C-REACTIVE PROTEIN INCREASED [None]
  - EYELID OEDEMA [None]
  - FACE OEDEMA [None]
  - HYPOVOLAEMIA [None]
  - OEDEMA [None]
  - PYREXIA [None]
  - TACHYCARDIA [None]
  - URTICARIA [None]
  - WHITE BLOOD CELL COUNT INCREASED [None]
